FAERS Safety Report 5594129-2 (Version None)
Quarter: 2008Q1

REPORT INFORMATION
  Report Type: 
  Country: None (occurrence: None)
  Receive Date: 20080115
  Receipt Date: 20080103
  Transmission Date: 20080703
  Serious: Yes (Other)
  Sender: FDA-Public Use
  Company Number: 2008SP000435

PATIENT
  Age: 80 Year
  Sex: Male

DRUGS (10)
  1. MIRALAX [Suspect]
     Indication: CONSTIPATION
     Dosage: PO
     Route: 048
     Dates: start: 20071229, end: 20080102
  2. PREVACID [Concomitant]
  3. INDERAL [Concomitant]
  4. SAW PALMETTO [Concomitant]
  5. PROSCAR [Concomitant]
  6. FLOMAX [Concomitant]
  7. PLAVIX [Concomitant]
  8. ALTACE [Concomitant]
  9. CENTRUM SILVER [Concomitant]
  10. ASPIRIN [Concomitant]

REACTIONS (1)
  - FAECES DISCOLOURED [None]
